FAERS Safety Report 4439769-9 (Version None)
Quarter: 2004Q3

REPORT INFORMATION
  Report Type: 
  Country: None (occurrence: None)
  Receive Date: 20040831
  Receipt Date: 20040816
  Transmission Date: 20050211
  Serious: Yes (Hospitalization)
  Sender: FDA-Public Use
  Company Number: 2004-03671

PATIENT
  Age: 75 Year
  Sex: Female

DRUGS (1)
  1. PREDNISONE [Suspect]
     Indication: POLYMYALGIA RHEUMATICA
     Dosage: ORAL
     Route: 048

REACTIONS (5)
  - CHOLECYSTITIS INFECTIVE [None]
  - CLOSTRIDIUM COLITIS [None]
  - HEPATITIS [None]
  - PEPTIC ULCER HAEMORRHAGE [None]
  - RENAL FAILURE [None]
